FAERS Safety Report 9068793 (Version 1)
Quarter: 2013Q1

REPORT INFORMATION
  Report Type: Spontaneous
  Country: US (occurrence: US)
  Receive Date: 20130215
  Receipt Date: 20130215
  Transmission Date: 20140127
  Serious: Yes (Death)
  Sender: FDA-Public Use
  Company Number: US-BANPHARM-20130709

PATIENT
  Age: 28 Year
  Sex: Male

DRUGS (4)
  1. AMANTADINE [Suspect]
     Route: 048
  2. ACTIVATED CHARCOAL [Suspect]
     Route: 048
  3. CARBAMAZEPINE [Suspect]
     Route: 048
  4. PALIPERIDONE [Suspect]
     Route: 048

REACTIONS (1)
  - Completed suicide [Fatal]
